FAERS Safety Report 16286970 (Version 2)
Quarter: 2021Q4

REPORT INFORMATION
  Report Type: Spontaneous
  Country: US (occurrence: US)
  Receive Date: 20190508
  Receipt Date: 20211104
  Transmission Date: 20220303
  Serious: No
  Sender: FDA-Public Use
  Company Number: US-PFIZER INC-2019195249

PATIENT
  Age: 53 Year
  Sex: Female

DRUGS (1)
  1. XELJANZ XR [Suspect]
     Active Substance: TOFACITINIB CITRATE
     Indication: Rheumatoid arthritis
     Dosage: 11 MG, DAILY
     Dates: end: 20200428

REACTIONS (16)
  - Illness [Unknown]
  - Bronchitis [Unknown]
  - Drug hypersensitivity [Unknown]
  - Rash [Unknown]
  - Arthralgia [Unknown]
  - Fall [Unknown]
  - Musculoskeletal stiffness [Unknown]
  - Onychomycosis [Unknown]
  - Peripheral swelling [Unknown]
  - Muscle spasms [Unknown]
  - Herpes zoster [Unknown]
  - Inflammation [Unknown]
  - Inflammatory marker increased [Unknown]
  - Arthritis [Unknown]
  - Pulmonary mass [Unknown]
  - Joint injury [Unknown]
